FAERS Safety Report 19158943 (Version 1)
Quarter: 2021Q2

REPORT INFORMATION
  Report Type: Spontaneous
  Country: US (occurrence: US)
  Receive Date: 20210420
  Receipt Date: 20210420
  Transmission Date: 20210717
  Serious: Yes (Life-Threatening, Other)
  Sender: FDA-Public Use
  Company Number: US-WEST THERAPEUTIC DEVELOPMENT-2021WTD00009

PATIENT
  Age: 24 Year
  Sex: Female

DRUGS (39)
  1. TYLENOL [Concomitant]
     Active Substance: ACETAMINOPHEN
     Dosage: 1000 MG, 2X/DAY
     Route: 048
  2. XANAX [Concomitant]
     Active Substance: ALPRAZOLAM
     Dosage: 0.5 MG ?1.0MG AT BEDTIME
     Route: 048
  3. XANAX [Concomitant]
     Active Substance: ALPRAZOLAM
     Dosage: 0.5 MG, 1X/DAY AS NEEDED
     Route: 048
  4. PHENERGAN [Concomitant]
     Active Substance: PROMETHAZINE HYDROCHLORIDE
     Dosage: 25 MG EVERY 6 HOURS AS NEEDED
  5. SENOKOT [Concomitant]
     Active Substance: SENNOSIDES
     Dosage: 8.6 MG, AS NEEDED 1X/DAY
  6. STADOL [Concomitant]
     Active Substance: BUTORPHANOL TARTRATE
     Dosage: 1 DOSAGE UNITS, EVERY 4 HOURS AS NEEDED
     Route: 045
  7. TYLENOL [Concomitant]
     Active Substance: ACETAMINOPHEN
     Dosage: 500 MG, AS NEEDED
     Route: 048
  8. TENORMIN [Concomitant]
     Active Substance: ATENOLOL
     Dosage: 25 MG, 1X/DAY AT BEDTIME
  9. EMLA [Concomitant]
     Active Substance: LIDOCAINE\PRILOCAINE
     Dosage: UNK, AS NEEDED
     Route: 061
  10. NARCAN [Concomitant]
     Active Substance: NALOXONE HYDROCHLORIDE
     Dosage: 4 MG AS NEEDED FOR OPIOID OVERDOSE
     Route: 045
  11. ZOMETA [Concomitant]
     Active Substance: ZOLEDRONIC ACID
     Dosage: 3 MG EVERY 90 DAYS
     Route: 042
  12. ZANTAC [Concomitant]
     Active Substance: RANITIDINE HYDROCHLORIDE
     Dosage: 150 MG, 2X/DAY
     Route: 048
  13. DECADRON [Concomitant]
     Active Substance: DEXAMETHASONE
     Dosage: 4 MG, 1X/DAY AS NEEDED
  14. PEPCID [Concomitant]
     Active Substance: FAMOTIDINE
     Dosage: 40 MG, 1X/DAY
     Route: 048
  15. ZOFRAN [Concomitant]
     Active Substance: ONDANSETRON HYDROCHLORIDE
     Dosage: 8 MG, AS NEEDED EVERY 8 HOURS
     Route: 048
  16. GLYCOLAX [Concomitant]
     Active Substance: POLYETHYLENE GLYCOL 3350
     Dosage: 17 G, AS NEEDED
     Route: 048
  17. TRINTELLIX [Concomitant]
     Active Substance: VORTIOXETINE HYDROBROMIDE
     Dosage: 5 MG, 1X/DAY
     Route: 048
  18. ZOFRAN ODT [Concomitant]
     Active Substance: ONDANSETRON HYDROCHLORIDE
     Dosage: 4 MG, EVERY 8 HOURS AS NEEDED
     Route: 048
  19. INDERAL [Concomitant]
     Active Substance: PROPRANOLOL HYDROCHLORIDE
     Dosage: 10 MG, 2X/DAY
     Route: 048
  20. DURAGESIC [Concomitant]
     Active Substance: FENTANYL
     Dosage: 100 ?G, EVERY 48 HOURS
     Route: 061
  21. ROGAINE [Concomitant]
     Active Substance: MINOXIDIL
     Dosage: USE AS DIRECTED ON PACKAGING
     Route: 061
  22. NECON 777 [Concomitant]
     Active Substance: ETHINYL ESTRADIOL\NORETHINDRONE
     Dosage: UNK, 1X/DAY SKIP PLACEBO WEEK
     Route: 048
  23. XARELTO [Concomitant]
     Active Substance: RIVAROXABAN
     Dosage: 20 MG, 1X/DAY
  24. BIOTIN [Concomitant]
     Active Substance: BIOTIN
     Dosage: 500 MG, DAILY AS NEEDED
     Route: 048
  25. MARINOL [Concomitant]
     Active Substance: DRONABINOL
     Dosage: 2.5 MG, 2X/DAY (BEFORE LUNCH AND DINNER)
     Route: 048
  26. DURAGESIC [Concomitant]
     Active Substance: FENTANYL
     Dosage: 25 ?G, EVERY 48 HOURS
     Route: 061
  27. PROTONIX [Concomitant]
     Active Substance: PANTOPRAZOLE SODIUM
     Dosage: 40 MG, 1X/DAY
     Route: 048
  28. ORTHO TRI CYCLEN LO [Concomitant]
     Active Substance: ETHINYL ESTRADIOL\NORGESTIMATE
     Dosage: UNK, 1X/DAY
     Route: 048
  29. SUBSYS [Suspect]
     Active Substance: FENTANYL
     Indication: BREAKTHROUGH PAIN
     Dosage: 800 ?G UNDER TONGUE EVERY 3 TO 4 HOURS AS NEEDED
     Route: 060
     Dates: start: 2015
  30. DESYREL [Concomitant]
     Active Substance: TRAZODONE HYDROCHLORIDE
     Dosage: 50?100MG 1X/DAY AS NEEDED
     Route: 048
  31. VITAMIN D2 [Concomitant]
     Active Substance: ERGOCALCIFEROL
     Dosage: UNK, 1X/DAY
     Route: 048
  32. SUBSYS [Suspect]
     Active Substance: FENTANYL
     Indication: BREAKTHROUGH PAIN
     Dosage: UNK
     Route: 060
     Dates: start: 2015
  33. SUBSYS [Suspect]
     Active Substance: FENTANYL
     Indication: BREAKTHROUGH PAIN
     Dosage: 600 ?G UNDER TONGUE EVERY 3 TO 4 HOURS AS NEEDED
     Route: 060
     Dates: start: 2015
  34. BIOTIIN [Concomitant]
     Dosage: 1 MG, 1X/DAY
     Route: 048
  35. ADVIL [Concomitant]
     Active Substance: IBUPROFEN
     Dosage: 600 MG EVERY 6 HOURS AS NEEDED FOR PAIN
     Route: 048
  36. PRENATAL VITAMINS [Concomitant]
     Active Substance: VITAMINS
     Dosage: 1 TABLETS, 1X/DAY
     Route: 048
  37. VENTOLIN HFA [Concomitant]
     Active Substance: ALBUTEROL SULFATE
     Dosage: 2 DOSAGE UNITS, EVERY 6 HOURS AS NEEDED
     Route: 048
  38. VITAMIN C [Concomitant]
     Active Substance: ASCORBIC ACID
     Dosage: 1000 MG, 1X/DAY
     Route: 048
  39. ZOFRAN [Concomitant]
     Active Substance: ONDANSETRON HYDROCHLORIDE
     Dosage: 4 MG
     Route: 048

REACTIONS (34)
  - Pulmonary embolism [Recovered/Resolved]
  - Nausea [Recovering/Resolving]
  - Hypoaesthesia [Not Recovered/Not Resolved]
  - Body dysmorphic disorder [Unknown]
  - Secondary hypertension [Unknown]
  - Ear pain [Not Recovered/Not Resolved]
  - Decreased appetite [Not Recovered/Not Resolved]
  - Vomiting [Recovering/Resolving]
  - Disturbance in attention [Unknown]
  - Muscle spasms [Unknown]
  - Muscle twitching [Not Recovered/Not Resolved]
  - Cough [Unknown]
  - Insomnia [Not Recovered/Not Resolved]
  - Muscular weakness [Unknown]
  - Myokymia [Unknown]
  - Neck pain [Not Recovered/Not Resolved]
  - Anxiety disorder [Recovering/Resolving]
  - Major depression [Recovering/Resolving]
  - Lymphadenectomy [Recovered/Resolved]
  - Iron deficiency anaemia [Unknown]
  - Sinus tachycardia [Unknown]
  - Lumbosacral radiculopathy [Unknown]
  - Suicidal ideation [Recovering/Resolving]
  - Paraganglion neoplasm [Unknown]
  - Depression [Recovering/Resolving]
  - Headache [Not Recovered/Not Resolved]
  - Migraine [Recovered/Resolved]
  - Constipation [Unknown]
  - Deep vein thrombosis [Recovered/Resolved]
  - Pneumonia [Recovered/Resolved]
  - Dyspnoea [Unknown]
  - Myalgia [Not Recovered/Not Resolved]
  - Tachycardia [Unknown]
  - Dysuria [Not Recovered/Not Resolved]

NARRATIVE: CASE EVENT DATE: 20150116
